FAERS Safety Report 4925705-5 (Version None)
Quarter: 2006Q1

REPORT INFORMATION
  Report Type: 
  Country: None (occurrence: None)
  Receive Date: 20060228
  Receipt Date: 20050126
  Transmission Date: 20060701
  Serious: No
  Sender: FDA-Public Use
  Company Number: US-GLAXOSMITHKLINE-A0542455A

PATIENT
  Age: 25 Year
  Sex: Female

DRUGS (5)
  1. LAMICTAL [Suspect]
     Indication: BIPOLAR DISORDER
     Route: 048
     Dates: start: 20020101
  2. GEODON [Concomitant]
  3. CYMBALTA [Concomitant]
  4. TRAZODONE [Concomitant]
  5. CLONOPIN [Concomitant]

REACTIONS (2)
  - TONGUE OEDEMA [None]
  - TREMOR [None]
